FAERS Safety Report 7550481-X (Version None)
Quarter: 2011Q2

REPORT INFORMATION
  Report Type: 
  Country: None (occurrence: None)
  Receive Date: 20110615
  Receipt Date: 20110601
  Transmission Date: 20111010
  Serious: Yes (Hospitalization, Other)
  Sender: FDA-Public Use
  Company Number: BR-GENENTECH-302242

PATIENT
  Sex: Female
  Weight: 90 kg

DRUGS (34)
  1. ULTRACET [Concomitant]
     Indication: PRODUCT USED FOR UNKNOWN INDICATION
  2. AMITRIPTYLINE HYDROCHLORIDE [Concomitant]
     Indication: PRODUCT USED FOR UNKNOWN INDICATION
     Dosage: 25 MG, UNK
  3. TYLENOL-500 [Concomitant]
     Indication: PREMEDICATION
  4. DRAMIN [Concomitant]
     Indication: PREMEDICATION
  5. RITUXIMAB [Suspect]
     Dosage: UNK
     Route: 042
     Dates: start: 20090101, end: 20090101
  6. NOVALGIN [Concomitant]
     Indication: PRODUCT USED FOR UNKNOWN INDICATION
     Dosage: UNK
  7. TIBOLONE [Concomitant]
     Dosage: 1.5 MG, UNK
  8. CYCLOBENZAPRINE HYDROCHLORIDE [Concomitant]
     Indication: PRODUCT USED FOR UNKNOWN INDICATION
     Dosage: UNK
  9. KETOPROFEN [Concomitant]
     Indication: PRODUCT USED FOR UNKNOWN INDICATION
     Dosage: 320 MG, Q8H
  10. KETOPROFEN [Concomitant]
     Dosage: 320 MG, UNK
  11. ACETAMINOPHEN [Concomitant]
     Indication: PRODUCT USED FOR UNKNOWN INDICATION
  12. RESFEDRYL [Concomitant]
     Indication: PRODUCT USED FOR UNKNOWN INDICATION
     Dosage: UNK
  13. PRESSOTEC [Concomitant]
     Indication: PRODUCT USED FOR UNKNOWN INDICATION
     Dosage: UNK
  14. METHOTREXATE [Concomitant]
     Indication: PRODUCT USED FOR UNKNOWN INDICATION
     Dosage: 2.5 MG, UNK
  15. TRAMADOL HCL [Concomitant]
     Indication: PRODUCT USED FOR UNKNOWN INDICATION
     Dosage: 50 MG, UNK
  16. DICLOFENAC SODIUM [Concomitant]
     Indication: PAIN
     Dosage: UNK
  17. TIBOLONE [Concomitant]
     Indication: PRODUCT USED FOR UNKNOWN INDICATION
     Dosage: 1.25 MG, UNK
  18. DICLOFENAC SODIUM [Concomitant]
     Indication: PRODUCT USED FOR UNKNOWN INDICATION
     Dosage: 70 MG, UNK
  19. CLONAZEPAM [Concomitant]
     Indication: PRODUCT USED FOR UNKNOWN INDICATION
     Dosage: 2 MG, UNK
  20. RITUXIMAB [Suspect]
     Dosage: UNK MG/ML, Q15D
     Route: 042
     Dates: start: 20100825, end: 20100901
  21. FOLIC ACID [Concomitant]
     Indication: PRODUCT USED FOR UNKNOWN INDICATION
  22. LYRICA [Concomitant]
     Indication: PRODUCT USED FOR UNKNOWN INDICATION
  23. CALCIUM CARBONATE [Concomitant]
     Indication: PRODUCT USED FOR UNKNOWN INDICATION
     Dosage: 500 MG, UNK
  24. BONIVA [Concomitant]
     Indication: PRODUCT USED FOR UNKNOWN INDICATION
     Dosage: 500 MG, UNK
  25. PREDNISONE [Suspect]
     Indication: PRODUCT USED FOR UNKNOWN INDICATION
     Dosage: 5 MG, UNK
  26. PREDNISONE [Suspect]
     Dosage: 20 MG, UNK
     Route: 065
  27. DORFLEX [Concomitant]
     Indication: PRODUCT USED FOR UNKNOWN INDICATION
     Dosage: UNK
  28. VASOPRIL PLUS [Concomitant]
     Indication: PRODUCT USED FOR UNKNOWN INDICATION
     Dosage: 32.5 MG, UNK
  29. OMEPRAZOLE [Concomitant]
     Indication: PRODUCT USED FOR UNKNOWN INDICATION
  30. RITUXIMAB [Suspect]
     Indication: RHEUMATOID ARTHRITIS
     Dosage: 1000 MG, Q15D
     Route: 042
     Dates: start: 20090915, end: 20091009
  31. RITUXIMAB [Suspect]
     Dosage: UNK
     Route: 042
     Dates: start: 20080101, end: 20080101
  32. PREDNISONE [Suspect]
     Dosage: 5 MG, UNK
     Route: 065
  33. LANSOPRAZOLE [Concomitant]
     Indication: PRODUCT USED FOR UNKNOWN INDICATION
  34. ACTONEL [Concomitant]
     Indication: PRODUCT USED FOR UNKNOWN INDICATION
     Dosage: 35 MG, UNK

REACTIONS (31)
  - MEDICAL DEVICE COMPLICATION [None]
  - ARTHRALGIA [None]
  - ABDOMINAL DISTENSION [None]
  - HYPERTENSION [None]
  - VOMITING [None]
  - FORMICATION [None]
  - SWELLING [None]
  - CATARACT [None]
  - WEIGHT INCREASED [None]
  - MALAISE [None]
  - OROPHARYNGEAL PAIN [None]
  - BACK PAIN [None]
  - FATIGUE [None]
  - BONE PAIN [None]
  - DIARRHOEA [None]
  - HYPERHIDROSIS [None]
  - BREAST ENLARGEMENT [None]
  - TIBIA FRACTURE [None]
  - LOWER LIMB FRACTURE [None]
  - NAUSEA [None]
  - SKIN EXFOLIATION [None]
  - DRY MOUTH [None]
  - HEADACHE [None]
  - MOBILITY DECREASED [None]
  - ABDOMINAL PAIN [None]
  - PRURITUS [None]
  - FALL [None]
  - PAIN [None]
  - PAIN IN EXTREMITY [None]
  - NASOPHARYNGITIS [None]
  - DYSPHONIA [None]
